FAERS Safety Report 25063530 (Version 2)
Quarter: 2025Q2

REPORT INFORMATION
  Report Type: Spontaneous
  Country: US (occurrence: US)
  Receive Date: 20250311
  Receipt Date: 20250404
  Transmission Date: 20250716
  Serious: No
  Sender: HETERO
  Company Number: US-HETERO-HET2025US01042

PATIENT
  Sex: Female
  Weight: 58.957 kg

DRUGS (1)
  1. DIMETHYL FUMARATE [Suspect]
     Active Substance: DIMETHYL FUMARATE
     Indication: Multiple sclerosis
     Route: 065

REACTIONS (2)
  - Abdominal pain upper [Unknown]
  - Product substitution issue [Unknown]
